FAERS Safety Report 13905796 (Version 1)
Quarter: 2017Q3

REPORT INFORMATION
  Report Type: Spontaneous
  Country: US (occurrence: US)
  Receive Date: 20170825
  Receipt Date: 20170825
  Transmission Date: 20171127
  Serious: No
  Sender: FDA-Public Use
  Company Number: US-GLAXOSMITHKLINE-US2017130502

PATIENT
  Age: 56 Year
  Sex: Male

DRUGS (10)
  1. ADVIL [Suspect]
     Active Substance: IBUPROFEN
     Indication: PRODUCT USED FOR UNKNOWN INDICATION
     Dosage: 200 MG, UNK
  2. TYLENOL [Concomitant]
     Active Substance: ACETAMINOPHEN
  3. VENTOLIN HFA [Suspect]
     Active Substance: ALBUTEROL SULFATE
     Indication: ASTHMA
     Dosage: 2 PUFF(S), PRN
     Route: 055
     Dates: start: 2015
  4. VENTOLIN HFA [Suspect]
     Active Substance: ALBUTEROL SULFATE
     Indication: WHEEZING
  5. METAXALONE. [Concomitant]
     Active Substance: METAXALONE
  6. CITRULLINE [Concomitant]
     Active Substance: CITRULLINE
  7. NAPROXEN. [Concomitant]
     Active Substance: NAPROXEN
  8. IBUPROFEN. [Suspect]
     Active Substance: IBUPROFEN
     Dosage: 600 MG, TID
  9. CIPRO [Concomitant]
     Active Substance: CIPROFLOXACIN HYDROCHLORIDE
  10. CLARITIN [Concomitant]
     Active Substance: LORATADINE

REACTIONS (5)
  - Muscle strain [Recovering/Resolving]
  - Abdominal pain upper [Recovering/Resolving]
  - Multiple allergies [Unknown]
  - Constipation [Recovering/Resolving]
  - Dyspnoea [Unknown]

NARRATIVE: CASE EVENT DATE: 20170803
